FAERS Safety Report 7216728-4 (Version None)
Quarter: 2011Q1

REPORT INFORMATION
  Report Type: 
  Country: None (occurrence: None)
  Receive Date: 20110110
  Receipt Date: 20101228
  Transmission Date: 20110831
  Serious: No
  Sender: FDA-Public Use
  Company Number: US-BIOGENIDEC-2011BI000534

PATIENT
  Age: 41 Year
  Sex: Female

DRUGS (6)
  1. NEURONTIN [Concomitant]
     Dates: end: 20101223
  2. LYRICA [Concomitant]
  3. TYSABRI [Suspect]
     Route: 042
     Dates: start: 20071219, end: 20081001
  4. LYRICA [Concomitant]
  5. TYSABRI [Suspect]
     Indication: MULTIPLE SCLEROSIS
     Route: 042
     Dates: start: 20101209
  6. AVONEX [Concomitant]
     Indication: MULTIPLE SCLEROSIS
     Route: 030
     Dates: start: 20090328

REACTIONS (2)
  - PAIN [None]
  - MULTIPLE SCLEROSIS [None]
